FAERS Safety Report 8906295 (Version 1)
Quarter: 2012Q4

REPORT INFORMATION
  Report Type: Spontaneous
  Country: US (occurrence: None)
  Receive Date: 20121106
  Receipt Date: 20121106
  Transmission Date: 20130627
  Serious: Yes (Hospitalization)
  Sender: FDA-Public Use
  Company Number: UTC-024200

PATIENT
  Age: 57 Year
  Sex: Female
  Weight: 47.27 kg

DRUGS (2)
  1. REMODULIN (10 MILLIGRAM/MILLILITERS, INJECTION FOR INFUSION) (TREPROSTINIL SODIUM) [Suspect]
     Indication: PRIMARY PULMONARY HYPERTENSION
     Dosage: (0.115 ug/kg, 1 in 1 min)
     Route: 058
     Dates: start: 20090812
  2. REVATIO (SILDENAFIL CITRATE) [Concomitant]

REACTIONS (3)
  - Subcutaneous abscess [None]
  - Pancreatitis [None]
  - Cellulitis [None]
